FAERS Safety Report 17860803 (Version 2)
Quarter: 2020Q2

REPORT INFORMATION
  Report Type: Spontaneous
  Country: NL (occurrence: NL)
  Receive Date: 20200604
  Receipt Date: 20200608
  Transmission Date: 20200714
  Serious: Yes (Other)
  Sender: FDA-Public Use
  Company Number: NL-PFIZER INC-2019543046

PATIENT
  Sex: Female
  Weight: 82 kg

DRUGS (26)
  1. PANTOPRAZOLE [Suspect]
     Active Substance: PANTOPRAZOLE
     Dosage: UNK
     Route: 065
  2. DASATINIB. [Suspect]
     Active Substance: DASATINIB
     Dosage: 100 MG, 1X/DAY
     Route: 048
     Dates: start: 20181012, end: 20190222
  3. PARACETAMOL [Concomitant]
     Active Substance: ACETAMINOPHEN
     Dosage: 1500 MG, 3X/DAY AS NEEDED BEFORE DIAGNOSIS
     Route: 065
  4. PAROXETIN [PAROXETINE] [Concomitant]
     Active Substance: PAROXETINE
     Dosage: 60 MG, 1X/DAY
     Route: 048
  5. AMLODIPINE [Concomitant]
     Active Substance: AMLODIPINE BESYLATE
     Dosage: 5 MILLIGRAM
     Route: 065
     Dates: start: 20190405, end: 20190507
  6. VITAMIN B COMPLEX [Concomitant]
     Active Substance: CYANOCOBALAMIN\DEXPANTHENOL\NIACINAMIDE\PYRIDOXINE HYDROCHLORIDE\RIBOFLAVIN 5^-PHOSPHATE SODIUM\THIAMINE HYDROCHLORIDE\VITAMIN B COMPLEX
     Dosage: UNK UNK, QD
     Route: 048
  7. ETHINYLESTRADIOL/GESTODEEN MYLAN [Concomitant]
     Dosage: UNK
     Route: 048
  8. PRAVASTATIN. [Suspect]
     Active Substance: PRAVASTATIN
     Dosage: 20 MILLIGRAM
     Route: 065
     Dates: start: 20190711, end: 20190807
  9. IMATINIB. [Suspect]
     Active Substance: IMATINIB MESYLATE
     Dosage: UNK
     Route: 065
     Dates: start: 20180426, end: 20181019
  10. AMLODIPINE [Concomitant]
     Active Substance: AMLODIPINE BESYLATE
     Dosage: 10 MILLIGRAM
     Route: 065
     Dates: start: 20190529, end: 20190808
  11. ETHINYLESTRADIOL/GESTODEEN MYLAN [Concomitant]
     Dosage: 20 MCG/75 MCG (1 PIECE, 1DD ALREADY AT START TREATMENT RELATION)
     Route: 048
  12. DAGRAVIT [IRON;VITAMINS NOS] [Concomitant]
     Dosage: 1 DF, 1X/DAY (TOTAL 30 TABLETS) (ALREADY AT START TREATMENT RELATION)
     Route: 048
  13. ETHINYLESTRADIOL/GESTODEEN MYLAN [Concomitant]
     Dosage: UNK
     Route: 048
  14. CELECOXIB. [Suspect]
     Active Substance: CELECOXIB
     Dosage: UNK
     Route: 065
     Dates: start: 20190222, end: 20190301
  15. IMATINIB. [Suspect]
     Active Substance: IMATINIB MESYLATE
     Indication: CHRONIC MYELOID LEUKAEMIA
     Dosage: 400 MILLIGRAM
     Route: 048
     Dates: start: 20180425, end: 20181012
  16. CALCIUM CARBONATE. [Concomitant]
     Active Substance: CALCIUM CARBONATE
     Dosage: 1 G, 1X/DAY (ALREADY AT START TREATMENT RELATION)
     Route: 048
  17. PARACETAMOL [Concomitant]
     Active Substance: ACETAMINOPHEN
     Dosage: 1500 MG, 1X/DAY
     Route: 065
  18. HYDREA [Concomitant]
     Active Substance: HYDROXYUREA
     Dosage: 1000 MG, 3X/DAY
     Route: 048
     Dates: start: 20190420, end: 20190429
  19. REVOLADE [Suspect]
     Active Substance: ELTROMBOPAG
     Dosage: UNK
     Route: 048
     Dates: start: 20190612, end: 20191106
  20. PONATINIB [Concomitant]
     Active Substance: PONATINIB
     Dosage: 45 MG, 1X/DAY
     Route: 065
     Dates: start: 20190222
  21. OXAZEPAM. [Concomitant]
     Active Substance: OXAZEPAM
     Dosage: 10 MG, 1X/DAY (1DD WHEN NECESSARY)
     Route: 048
  22. NILOTINIB [Suspect]
     Active Substance: NILOTINIB
     Dosage: UNK
     Route: 065
     Dates: start: 20200202
  23. LISINOPRIL. [Concomitant]
     Active Substance: LISINOPRIL
     Dosage: 20 MG, 1X/DAY
     Route: 048
     Dates: start: 20190722
  24. DAGRAVIT [ASCORBIC ACID;COLECALCIFEROL;DEXPANTHENOL;NICOTINAMIDE;PYRID [Concomitant]
     Dosage: UNK, 1X/DAY
     Route: 048
  25. LEVOCETIRIZINE [Concomitant]
     Active Substance: LEVOCETIRIZINE
     Dosage: 5 MG, 1X/DAY (AT NIGHT (AN) ALREADY AT START TREATMENT RELATION)
     Route: 048
  26. OMEPRAZOLE TEVA [OMEPRAZOLE] [Concomitant]
     Dosage: 40 MG, 1X/DAY (1DD FOR THE NIGHT (AN)
     Route: 065
     Dates: start: 20180420

REACTIONS (22)
  - Thrombocytopenia [Not Recovered/Not Resolved]
  - Decreased appetite [Unknown]
  - Feeling hot [Unknown]
  - Increased appetite [Unknown]
  - Pain in extremity [Unknown]
  - Flatulence [Unknown]
  - Hot flush [Recovered/Resolved]
  - Therapeutic product effect incomplete [Unknown]
  - Myalgia [Unknown]
  - Leukocytosis [Unknown]
  - Poor quality sleep [Unknown]
  - Weight increased [Unknown]
  - Dizziness [Unknown]
  - Pancytopenia [Recovering/Resolving]
  - Anaemia [Unknown]
  - Nausea [Unknown]
  - Cytogenetic analysis abnormal [Unknown]
  - Drug ineffective [Unknown]
  - Fatigue [Unknown]
  - Headache [Unknown]
  - Diarrhoea [Unknown]
  - Musculoskeletal stiffness [Unknown]

NARRATIVE: CASE EVENT DATE: 20180425
